FAERS Safety Report 17591064 (Version 1)
Quarter: 2020Q1

REPORT INFORMATION
  Report Type: Spontaneous
  Country: FR (occurrence: FR)
  Receive Date: 20200327
  Receipt Date: 20200327
  Transmission Date: 20200409
  Serious: Yes (Death, Hospitalization)
  Sender: FDA-Public Use
  Company Number: FR-PFIZER INC-2020126986

PATIENT
  Age: 75 Year
  Sex: Male
  Weight: 76 kg

DRUGS (11)
  1. LANSOPRAZOLE. [Concomitant]
     Active Substance: LANSOPRAZOLE
     Dosage: UNK
  2. CYTARABINE. [Suspect]
     Active Substance: CYTARABINE
     Indication: ACUTE LYMPHOCYTIC LEUKAEMIA
     Dosage: 5760 MG, CYCLIC
     Route: 041
     Dates: start: 20180305
  3. VALACICLOVIR [Concomitant]
     Active Substance: VALACYCLOVIR HYDROCHLORIDE
     Dosage: UNK
  4. FOLIC ACID. [Concomitant]
     Active Substance: FOLIC ACID
     Dosage: UNK
  5. PARACETAMOL [Concomitant]
     Active Substance: ACETAMINOPHEN
     Dosage: UNK
  6. FLECAINE [Concomitant]
     Active Substance: FLECAINIDE
     Dosage: UNK
  7. XATRAL [ALFUZOSIN HYDROCHLORIDE] [Concomitant]
     Active Substance: ALFUZOSIN
     Dosage: UNK
  8. TASIGNA [Suspect]
     Active Substance: NILOTINIB
     Indication: ACUTE LYMPHOCYTIC LEUKAEMIA
     Dosage: 22400 MG, CYCLIC
     Route: 048
     Dates: start: 20180305
  9. LEVOTHYROX [Concomitant]
     Active Substance: LEVOTHYROXINE
     Dosage: UNK
  10. ISONIAZIDE [Concomitant]
     Active Substance: ISONIAZID
     Dosage: UNK
  11. MOVICOL [Concomitant]
     Active Substance: POLYETHYLENE GLYCOL 3350\POTASSIUM CHLORIDE\SODIUM BICARBONATE\SODIUM CHLORIDE
     Dosage: UNK

REACTIONS (2)
  - Cardio-respiratory arrest [Fatal]
  - Bone marrow failure [Recovered/Resolved]

NARRATIVE: CASE EVENT DATE: 20180317
